FAERS Safety Report 8435659-5 (Version None)
Quarter: 2012Q2

REPORT INFORMATION
  Report Type: 
  Country: None (occurrence: None)
  Receive Date: 20120614
  Receipt Date: 20120607
  Transmission Date: 20120825
  Serious: Yes (Congenital Anomaly, Other)
  Sender: FDA-Public Use
  Company Number: US-JNJFOC-20120205137

PATIENT
  Sex: Female

DRUGS (2)
  1. TOPAMAX [Suspect]
     Indication: FOETAL EXPOSURE DURING PREGNANCY
     Route: 064
  2. LAMICTAL [Suspect]
     Indication: FOETAL EXPOSURE DURING PREGNANCY
     Route: 064

REACTIONS (8)
  - PIERRE ROBIN SYNDROME [None]
  - SPEECH DISORDER [None]
  - EUSTACHIAN TUBE DISORDER [None]
  - CLEFT PALATE [None]
  - TYMPANIC MEMBRANE ATROPHIC [None]
  - TYMPANIC MEMBRANE PERFORATION [None]
  - OTITIS MEDIA CHRONIC [None]
  - EMOTIONAL DISORDER [None]
